FAERS Safety Report 7688172-7 (Version None)
Quarter: 2011Q3

REPORT INFORMATION
  Report Type: 
  Country: None (occurrence: None)
  Receive Date: 20110817
  Receipt Date: 20110705
  Transmission Date: 20111222
  Serious: No
  Sender: FDA-Public Use
  Company Number: US-GLAXOSMITHKLINE-A0921372A

PATIENT
  Age: 66 Year
  Sex: Male
  Weight: 116 kg

DRUGS (2)
  1. VOTRIENT [Suspect]
     Indication: METASTATIC RENAL CELL CARCINOMA
     Dosage: 800MG PER DAY
     Route: 048
     Dates: start: 20110316, end: 20110621
  2. LIPITOR [Concomitant]

REACTIONS (4)
  - FREQUENT BOWEL MOVEMENTS [None]
  - FATIGUE [None]
  - DIARRHOEA [None]
  - HEADACHE [None]
